FAERS Safety Report 8065235-8 (Version None)
Quarter: 2012Q1

REPORT INFORMATION
  Report Type: 
  Country: None (occurrence: None)
  Receive Date: 20120124
  Receipt Date: 20120112
  Transmission Date: 20120608
  Serious: Yes (Other)
  Sender: FDA-Public Use
  Company Number: US-BAYER-2011-055250

PATIENT
  Age: 49 Year
  Sex: Female
  Weight: 60.317 kg

DRUGS (7)
  1. SIMVASTATIN [Concomitant]
     Dosage: 20 MG, UNK
  2. PREVACID [Concomitant]
     Dosage: 30 MG, UNK
  3. YASMIN [Suspect]
     Indication: PRODUCT USED FOR UNKNOWN INDICATION
     Dosage: UNK
     Dates: start: 20020201, end: 20070701
  4. ORAL CONTRACEPTIVE NOS [Concomitant]
     Dosage: UNK
     Dates: start: 20070522
  5. ADVAIR DISKUS 100/50 [Concomitant]
     Indication: ASTHMA
     Dosage: UNK
     Dates: start: 20000101
  6. SYNTHROID [Concomitant]
     Indication: THYROID DISORDER
     Dosage: UNK
     Route: 048
     Dates: start: 19940101
  7. ZOLOFT [Concomitant]
     Indication: ANXIETY
     Dosage: UNK
     Route: 048
     Dates: start: 19980101

REACTIONS (6)
  - MENTAL DISORDER [None]
  - GALLBLADDER DISORDER [None]
  - PAIN [None]
  - BILIARY DYSKINESIA [None]
  - CHOLECYSTITIS CHRONIC [None]
  - INJURY [None]
